FAERS Safety Report 15203317 (Version 7)
Quarter: 2019Q4

REPORT INFORMATION
  Report Type: Spontaneous
  Country: US (occurrence: US)
  Receive Date: 20180726
  Receipt Date: 20191115
  Transmission Date: 20200122
  Serious: Yes (Hospitalization)
  Sender: FDA-Public Use
  Company Number: US-PFIZER INC-2018295721

PATIENT
  Age: 38 Year
  Sex: Male
  Weight: 104.33 kg

DRUGS (5)
  1. SOMAVERT [Suspect]
     Active Substance: PEGVISOMANT
     Indication: ACROMEGALY
     Dosage: 25 MG, DAILY (INJECTED 7 DAYS PER WEEK)
  2. PANTOPRAZOLE SODIUM. [Concomitant]
     Active Substance: PANTOPRAZOLE SODIUM
     Dosage: 40 MG, 2X/DAY
  3. SOMAVERT [Suspect]
     Active Substance: PEGVISOMANT
     Indication: NEOPLASM
     Dosage: 20 MG, ONCE DAILY
     Route: 058
     Dates: start: 201806
  4. SOMAVERT [Suspect]
     Active Substance: PEGVISOMANT
     Dosage: 30 MG, DAILY
  5. SOMAVERT [Suspect]
     Active Substance: PEGVISOMANT
     Indication: HYPOTHALAMO-PITUITARY DISORDER
     Dosage: 20 MG, DAILY
     Dates: start: 2016

REACTIONS (7)
  - Asthenia [Unknown]
  - Rectal haemorrhage [Recovered/Resolved]
  - Product dose omission [Unknown]
  - Constipation [Unknown]
  - Haemorrhoids [Recovered/Resolved]
  - Insulin-like growth factor increased [Unknown]
  - Condition aggravated [Unknown]

NARRATIVE: CASE EVENT DATE: 201807
